FAERS Safety Report 10236680 (Version 6)
Quarter: 2015Q1

REPORT INFORMATION
  Report Type: Spontaneous
  Country: US (occurrence: US)
  Receive Date: 20140613
  Receipt Date: 20150116
  Transmission Date: 20150720
  Serious: Yes (Death, Hospitalization, Disabling, Other)
  Sender: FDA-Public Use
  Company Number: US-009507513-1406USA007094

PATIENT
  Sex: Male
  Weight: 97.96 kg

DRUGS (5)
  1. JANUMET [Suspect]
     Active Substance: METFORMIN HYDROCHLORIDE\SITAGLIPTIN PHOSPHATE
     Indication: TYPE 2 DIABETES MELLITUS
     Dosage: 50/1,000 QD
     Route: 048
     Dates: start: 200707, end: 200709
  2. BYETTA [Suspect]
     Active Substance: EXENATIDE
     Indication: TYPE 2 DIABETES MELLITUS
     Dosage: 5 MICROGRAM, BID
     Dates: start: 200704, end: 200706
  3. JANUVIA [Suspect]
     Active Substance: SITAGLIPTIN PHOSPHATE
     Indication: TYPE 2 DIABETES MELLITUS
     Dosage: 100 MG, QD
     Route: 048
     Dates: start: 20061213, end: 200704
  4. JANUVIA [Suspect]
     Active Substance: SITAGLIPTIN PHOSPHATE
     Dosage: 100 MG, QD
     Route: 048
     Dates: start: 200706, end: 20070826
  5. JANUMET [Suspect]
     Active Substance: METFORMIN HYDROCHLORIDE\SITAGLIPTIN PHOSPHATE
     Dosage: 50/1,000 1 TAB BID
     Route: 048
     Dates: end: 20080627

REACTIONS (29)
  - Cholelithiasis [Unknown]
  - Cardiac failure congestive [Unknown]
  - Metastatic lymphoma [Unknown]
  - Pulmonary infarction [Unknown]
  - Sepsis [Unknown]
  - Flank pain [Unknown]
  - Organ failure [Unknown]
  - Hypercholesterolaemia [Unknown]
  - Gastrooesophageal reflux disease [Unknown]
  - Pancreatic carcinoma metastatic [Fatal]
  - Explorative laparotomy [Unknown]
  - Deep vein thrombosis [Unknown]
  - Acute kidney injury [Unknown]
  - Depression [Unknown]
  - Anxiety [Unknown]
  - Mental status changes [Unknown]
  - Pyrexia [Unknown]
  - Anaemia [Unknown]
  - Candida infection [Unknown]
  - Atrial fibrillation [Unknown]
  - Retroperitoneal cancer [Unknown]
  - Diabetic neuropathy [Unknown]
  - Insomnia [Unknown]
  - Sedation [Unknown]
  - Hypercalcaemia [Unknown]
  - Pleural effusion [Unknown]
  - Blood creatinine increased [Unknown]
  - Malignant ascites [Unknown]
  - Diabetes mellitus inadequate control [Unknown]

NARRATIVE: CASE EVENT DATE: 2007
